FAERS Safety Report 5087460-0 (Version None)
Quarter: 2006Q3

REPORT INFORMATION
  Report Type: 
  Country: None (occurrence: None)
  Receive Date: 20060824
  Receipt Date: 20060817
  Transmission Date: 20061208
  Serious: Yes (Hospitalization)
  Sender: FDA-Public Use
  Company Number: US-BRISTOL-MYERS SQUIBB COMPANY-13479134

PATIENT
  Age: 66 Year
  Sex: Female
  Weight: 74 kg

DRUGS (3)
  1. ERBITUX [Suspect]
     Indication: COLON CANCER
     Dates: start: 20060816, end: 20060816
  2. ERBITUX [Suspect]
     Route: 042
     Dates: start: 20060816, end: 20060816
  3. DIPHENHYDRAMINE [Concomitant]
     Indication: PREMEDICATION
     Route: 042
     Dates: start: 20060816, end: 20060816

REACTIONS (3)
  - CARDIAC ARREST [None]
  - COMA [None]
  - HYPERSENSITIVITY [None]
